FAERS Safety Report 8381941-X (Version None)
Quarter: 2012Q1

REPORT INFORMATION
  Report Type: 
  Country: None (occurrence: None)
  Receive Date: 20120323
  Receipt Date: 20110920
  Transmission Date: 20120608
  Serious: Yes (Hospitalization)
  Sender: FDA-Public Use
  Company Number: 163-21880-11051774

PATIENT
  Age: 63 Year
  Sex: Male

DRUGS (10)
  1. VELCADE [Concomitant]
  2. VITAMIN D [Concomitant]
  3. DEXAMETHASONE [Concomitant]
  4. PRAVACHOL [Concomitant]
  5. OMEPRAZOLE [Concomitant]
  6. REVLIMID [Suspect]
     Indication: MULTIPLE MYELOMA
     Dosage: 25 MG, 1 IN 1 D, PO ; 25 MG, 1 IN 1 D, PO
     Route: 048
     Dates: start: 20110201, end: 20110301
  7. REVLIMID [Suspect]
     Indication: MULTIPLE MYELOMA
     Dosage: 25 MG, 1 IN 1 D, PO ; 25 MG, 1 IN 1 D, PO
     Route: 048
     Dates: start: 20110302, end: 20110309
  8. LISINOPRIL/HCT (PRINZIDE) [Concomitant]
  9. FLUIDS (I.V. SOLUTIONS) [Concomitant]
  10. MAGIC MOUTHWASH (OTHER AGENTS FOR LOCAL ORL TREATMENT) [Concomitant]

REACTIONS (8)
  - LIP SWELLING [None]
  - MYALGIA [None]
  - ASTHENIA [None]
  - HEADACHE [None]
  - SWELLING FACE [None]
  - PNEUMONIA [None]
  - MALAISE [None]
  - FATIGUE [None]
